FAERS Safety Report 6684776-9 (Version None)
Quarter: 2010Q2

REPORT INFORMATION
  Report Type: 
  Country: None (occurrence: None)
  Receive Date: 20100416
  Receipt Date: 20100414
  Transmission Date: 20101027
  Serious: Yes (Other)
  Sender: FDA-Public Use
  Company Number: FR-WATSON-2010-04971

PATIENT
  Age: 59 Year
  Sex: Female

DRUGS (1)
  1. MONODOX [Suspect]
     Indication: MALARIA PROPHYLAXIS
     Dosage: 100 MG, DAILY
     Route: 048

REACTIONS (1)
  - DRUG RASH WITH EOSINOPHILIA AND SYSTEMIC SYMPTOMS [None]
